FAERS Safety Report 14008085 (Version 1)
Quarter: 2017Q3

REPORT INFORMATION
  Report Type: Spontaneous
  Country: US (occurrence: None)
  Receive Date: 20170924
  Receipt Date: 20170924
  Transmission Date: 20171128
  Serious: Yes (Hospitalization)
  Sender: FDA-Public Use
  Company Number: None

PATIENT
  Age: 58 Year
  Sex: Female

DRUGS (1)
  1. ZARXIO [Suspect]
     Active Substance: FILGRASTIM-SNDZ
     Indication: STEM CELL TRANSPLANT
     Dosage: FREQUENCY - BID X8 DAYS
     Route: 058
     Dates: start: 20170823

REACTIONS (2)
  - Infusion related reaction [None]
  - Sepsis [None]

NARRATIVE: CASE EVENT DATE: 20170830
